FAERS Safety Report 17724992 (Version 1)
Quarter: 2020Q2

REPORT INFORMATION
  Report Type: Spontaneous
  Country: US (occurrence: US)
  Receive Date: 20200429
  Receipt Date: 20200429
  Transmission Date: 20200714
  Serious: No
  Sender: FDA-Public Use
  Company Number: US-009507513-2004USA008380

PATIENT
  Sex: Female

DRUGS (6)
  1. CARVEDILOL. [Concomitant]
     Active Substance: CARVEDILOL
     Dosage: TWICE DAILY
  2. SEROQUEL [Concomitant]
     Active Substance: QUETIAPINE FUMARATE
  3. BELSOMRA [Suspect]
     Active Substance: SUVOREXANT
     Indication: POOR QUALITY SLEEP
     Dosage: 1 TABLET (15 MILLIGRAM), QPM
     Route: 048
     Dates: start: 202003, end: 2020
  4. BELSOMRA [Suspect]
     Active Substance: SUVOREXANT
     Dosage: UNK, QPM
     Route: 048
     Dates: start: 20200424
  5. ASPIRIN. [Concomitant]
     Active Substance: ASPIRIN
  6. BELSOMRA [Suspect]
     Active Substance: SUVOREXANT
     Dosage: 2 TABLETS (15 MILLIGRAM), QPM
     Route: 048
     Dates: start: 2020, end: 2020

REACTIONS (3)
  - Drug ineffective [Not Recovered/Not Resolved]
  - Intentional product misuse [Unknown]
  - Intentional overdose [Unknown]

NARRATIVE: CASE EVENT DATE: 2020
